FAERS Safety Report 5638515-0 (Version None)
Quarter: 2008Q1

REPORT INFORMATION
  Report Type: 
  Country: None (occurrence: None)
  Receive Date: 20080226
  Receipt Date: 20070320
  Transmission Date: 20080703
  Serious: No
  Sender: FDA-Public Use
  Company Number: A0641940A

PATIENT
  Age: 65 Year
  Sex: Female

DRUGS (5)
  1. IMITREX [Suspect]
     Indication: DRUG USE FOR UNKNOWN INDICATION
     Route: 065
  2. DIETARY SUPPLEMENT [Concomitant]
     Indication: PROPHYLAXIS
  3. TYLENOL ES [Concomitant]
  4. ESGIC [Concomitant]
  5. EXCEDRIN [Concomitant]

REACTIONS (7)
  - CHEST PAIN [None]
  - FLUSHING [None]
  - HEADACHE [None]
  - HOT FLUSH [None]
  - HYPERTENSION [None]
  - ILL-DEFINED DISORDER [None]
  - PAIN [None]
